FAERS Safety Report 4355665-X (Version None)
Quarter: 2004Q2

REPORT INFORMATION
  Report Type: 
  Country: None (occurrence: None)
  Receive Date: 20040510
  Receipt Date: 20040421
  Transmission Date: 20050107
  Serious: Yes (Hospitalization)
  Sender: FDA-Public Use
  Company Number: JP-MERCK-0404USA02090

PATIENT
  Age: 45 Year
  Sex: Male
  Weight: 64 kg

DRUGS (7)
  1. ARBEKACIN [Concomitant]
     Indication: INFECTION
     Route: 065
  2. BIAPENEM [Concomitant]
     Indication: INFECTION
     Route: 065
  3. CEFPIROME SULFATE [Concomitant]
     Indication: INFECTION
     Route: 065
  4. PRIMAXIN [Suspect]
     Indication: INFECTION
     Route: 041
  5. FLOMOXEF SODIUM [Concomitant]
     Indication: INFECTION
     Route: 065
  6. TEICOPLANIN [Concomitant]
     Indication: INFECTION
     Route: 065
  7. VANCOMYCIN HYDROCHLORIDE [Concomitant]
     Indication: INFECTION
     Route: 065

REACTIONS (1)
  - HENOCH-SCHONLEIN PURPURA [None]
